FAERS Safety Report 11692472 (Version 1)
Quarter: 2015Q4

REPORT INFORMATION
  Report Type: Spontaneous
  Country: US (occurrence: US)
  Receive Date: 20151103
  Receipt Date: 20151103
  Transmission Date: 20160304
  Serious: Yes (Other)
  Sender: FDA-Public Use
  Company Number: US-ROCHE-1654616

PATIENT
  Sex: Female

DRUGS (1)
  1. ERIVEDGE [Suspect]
     Active Substance: VISMODEGIB
     Indication: BASAL CELL CARCINOMA
     Route: 065
     Dates: start: 20150722

REACTIONS (9)
  - Dysgeusia [Unknown]
  - Fatigue [Unknown]
  - Muscle spasms [Not Recovered/Not Resolved]
  - Constipation [Unknown]
  - Alopecia [Unknown]
  - Diarrhoea [Unknown]
  - Arthropathy [Unknown]
  - Middle insomnia [Unknown]
  - Weight decreased [Unknown]
